FAERS Safety Report 9527755 (Version 1)
Quarter: 2013Q1

REPORT INFORMATION
  Report Type: Spontaneous
  Country: US (occurrence: None)
  Receive Date: 20130314
  Receipt Date: 20130314
  Transmission Date: 20140127
  Serious: No
  Sender: FDA-Public Use
  Company Number: 1302USA007562

PATIENT
  Age: 62 Year
  Sex: Male

DRUGS (5)
  1. VICTRELIS [Suspect]
     Indication: HEPATITIS C
     Dosage: 800 MG, TID, PO
     Route: 048
     Dates: start: 201211
  2. RIBAPAK [Suspect]
     Indication: HEPATITIS C
  3. PEGASYS [Suspect]
     Indication: HEPATITIS C
  4. NEUPOGEN (FILGRASTIM) [Concomitant]
  5. PROCRIT [Concomitant]

REACTIONS (4)
  - Crying [None]
  - Somnolence [None]
  - Depression [None]
  - Decreased interest [None]
